FAERS Safety Report 20992488 (Version 4)
Quarter: 2024Q1

REPORT INFORMATION
  Report Type: Spontaneous
  Country: US (occurrence: US)
  Receive Date: 20220622
  Receipt Date: 20240222
  Transmission Date: 20240410
  Serious: No
  Sender: FDA-Public Use
  Company Number: US-PFIZER INC-PV202200006740

PATIENT
  Age: 67 Year
  Sex: Female

DRUGS (1)
  1. IBRANCE [Suspect]
     Active Substance: PALBOCICLIB
     Dosage: 125 MG
     Dates: end: 20231216

REACTIONS (4)
  - Alopecia [Not Recovered/Not Resolved]
  - Hair growth abnormal [Unknown]
  - Weight fluctuation [Unknown]
  - Arthritis [Unknown]
